FAERS Safety Report 7323208-4 (Version None)
Quarter: 2011Q1

REPORT INFORMATION
  Report Type: 
  Country: None (occurrence: None)
  Receive Date: 20110217
  Receipt Date: 20110202
  Transmission Date: 20110831
  Serious: Yes (Disabling)
  Sender: FDA-Public Use
  Company Number: DSJ-2010-12637

PATIENT
  Age: 62 Year
  Sex: Female
  Weight: 38 kg

DRUGS (4)
  1. NU-LOTAN (LOSARTAN POTASSIUM) (LOSARTAN POTASSIUM) [Concomitant]
  2. AMLODIN OD (AMLODIPINE BESILATE) (AMLODIPINE BESILATE) [Concomitant]
  3. OLMETEC (OLMESARTAN MEDOXOMIL) (TABLET) (OLMESARTAN MEDOXIMIL) [Suspect]
     Indication: ESSENTIAL HYPERTENSION
     Dosage: 20 MG, PER ORAL
     Route: 048
     Dates: start: 20100615, end: 20100701
  4. COMELIAN (DILAZEP DIHYDROCHLORIDE) (DILAZEP DIHYDROCHLORIDE) [Concomitant]

REACTIONS (1)
  - LACUNAR INFARCTION [None]
